FAERS Safety Report 9697224 (Version 3)
Quarter: 2013Q4

REPORT INFORMATION
  Report Type: Spontaneous
  Country: GR (occurrence: GR)
  Receive Date: 20131120
  Receipt Date: 20131224
  Transmission Date: 20140711
  Serious: Yes (Hospitalization, Other)
  Sender: FDA-Public Use
  Company Number: GR-AMGEN-GRCSP2013081233

PATIENT
  Age: 69 Year
  Sex: Female
  Weight: 63.7 kg

DRUGS (4)
  1. PROLIA [Suspect]
     Indication: OSTEOPOROSIS POSTMENOPAUSAL
     Dosage: 60 MG, Q6MO
     Route: 058
     Dates: start: 20110511
  2. T4 [Concomitant]
     Indication: HYPOTHYROIDISM
     Dosage: 62 MUG, QD
     Route: 065
     Dates: start: 200905
  3. NATECAL D3 [Concomitant]
     Dosage: UNK UNK, BID
     Route: 065
     Dates: start: 200904
  4. OLMETEC PLUS [Concomitant]
     Dosage: 12.5
     Route: 065
     Dates: start: 201210

REACTIONS (2)
  - Femur fracture [Recovering/Resolving]
  - Fall [Unknown]
